FAERS Safety Report 10094646 (Version 1)
Quarter: 2014Q2

REPORT INFORMATION
  Report Type: Spontaneous
  Country: US (occurrence: None)
  Receive Date: 20140421
  Receipt Date: 20140421
  Transmission Date: 20141212
  Serious: Yes (Hospitalization)
  Sender: FDA-Public Use
  Company Number: None

PATIENT
  Age: 77 Year
  Sex: Male

DRUGS (1)
  1. DONEPEZIL [Suspect]
     Indication: DEMENTIA
     Dosage: 1 PILL, ONCE DAILY, TAKEN BY MOUTH
     Route: 048
     Dates: start: 20140218, end: 20140323

REACTIONS (6)
  - Rash [None]
  - Blister [None]
  - Oral pain [None]
  - Lip swelling [None]
  - Streptococcal infection [None]
  - Immobile [None]
